FAERS Safety Report 15565529 (Version 2)
Quarter: 2018Q4

REPORT INFORMATION
  Report Type: Report from Study
  Country: SE (occurrence: SE)
  Receive Date: 20181030
  Receipt Date: 20181101
  Transmission Date: 20190205
  Serious: Yes (Hospitalization)
  Sender: FDA-Public Use
  Company Number: SE-ROCHE-2203567

PATIENT
  Sex: Male
  Weight: 91 kg

DRUGS (6)
  1. RITUXIMAB. [Suspect]
     Active Substance: RITUXIMAB
     Indication: CHRONIC LYMPHOCYTIC LEUKAEMIA
     Dosage: CYCLE 1: 375 MG/M2, D0; CYCLES 2-6: 500 MG/M2, D1; Q28D?DATE OF MOST RECENT DOSE OF RITUXIMAB (1000
     Route: 042
     Dates: start: 20181017, end: 20181018
  2. BISOPROLOL [Concomitant]
     Active Substance: BISOPROLOL
     Route: 048
     Dates: start: 20180303
  3. ONDANSETRAN [Concomitant]
     Active Substance: ONDANSETRON HYDROCHLORIDE
     Route: 048
     Dates: start: 20181017, end: 20181017
  4. VALACICLOVIR [Concomitant]
     Active Substance: VALACYCLOVIR HYDROCHLORIDE
     Route: 048
     Dates: start: 20181002
  5. BENDAMUSTINE [Suspect]
     Active Substance: BENDAMUSTINE
     Indication: CHRONIC LYMPHOCYTIC LEUKAEMIA
     Dosage: CYCLES 1-6: 90MG/M2, D1-2, Q28D?DATE OF MOST RECENT DOSE OF BENDAMUSTINE (146 MG) PRIOR TO AE ONSET:
     Route: 065
     Dates: start: 20181017
  6. AERIUS (SWEDEN) [Concomitant]
     Route: 048
     Dates: start: 20180409

REACTIONS (1)
  - Pyrexia [Recovered/Resolved]

NARRATIVE: CASE EVENT DATE: 20181018
